FAERS Safety Report 12600889 (Version 2)
Quarter: 2016Q3

REPORT INFORMATION
  Report Type: Report from Study
  Country: BR (occurrence: BR)
  Receive Date: 20160727
  Receipt Date: 20160907
  Transmission Date: 20161109
  Serious: Yes (Other)
  Sender: FDA-Public Use
  Company Number: BR-AMGEN-BRANI2016094554

PATIENT
  Age: 6 Year
  Sex: Female
  Weight: 23.5 kg

DRUGS (2)
  1. BLINATUMOMAB [Suspect]
     Active Substance: BLINATUMOMAB
     Indication: ACUTE LYMPHOCYTIC LEUKAEMIA
     Dosage: 4.5 MUG, QD 24 H FIRST SEVEN DAYS
     Route: 065
     Dates: start: 20160629
  2. BLINATUMOMAB [Suspect]
     Active Substance: BLINATUMOMAB
     Dosage: 13.5 MUG, QD 24H FROM THE EIGHTH DAY
     Route: 065
     Dates: end: 20160715

REACTIONS (1)
  - Acute lymphocytic leukaemia [Unknown]
